FAERS Safety Report 17443087 (Version 1)
Quarter: 2020Q1

REPORT INFORMATION
  Report Type: Report from Study
  Country: None (occurrence: BR)
  Receive Date: 20200221
  Receipt Date: 20200221
  Transmission Date: 20200409
  Serious: Yes (Other)
  Sender: FDA-Public Use
  Company Number: BR-ABBVIE-20K-020-3282590-00

PATIENT
  Sex: Female

DRUGS (1)
  1. HUMIRA [Suspect]
     Active Substance: ADALIMUMAB
     Indication: AXIAL SPONDYLOARTHRITIS
     Route: 058
     Dates: start: 20170801

REACTIONS (5)
  - Bedridden [Unknown]
  - Crohn^s disease [Unknown]
  - Asthenia [Unknown]
  - Malaise [Unknown]
  - Speech disorder [Unknown]

NARRATIVE: CASE EVENT DATE: 20200212
